FAERS Safety Report 16949686 (Version 1)
Quarter: 2019Q4

REPORT INFORMATION
  Report Type: Spontaneous
  Country: DE (occurrence: DE)
  Receive Date: 20191023
  Receipt Date: 20191023
  Transmission Date: 20200122
  Serious: Yes (Hospitalization)
  Sender: FDA-Public Use
  Company Number: DE-TEVA-2019-DE-1125824

PATIENT
  Age: 35 Month
  Sex: Male
  Weight: 12 kg

DRUGS (3)
  1. AMOXICILLIN TS 250 MG/5 ML [Suspect]
     Active Substance: AMOXICILLIN
     Indication: PNEUMONIA
     Dosage: DAILY DOSE: 3 DF DOSAGE FORM EVERY DAYS 3 SEPARATED DOSES/ DAY/ 6 DAYS
     Route: 048
     Dates: start: 20190624, end: 20190629
  2. SALBUTAMOL SPRAY [Concomitant]
     Indication: PNEUMONIA
     Dosage: DAILY DOSE: 6 DF DOSAGE FORM EVERY DAYS 3 SEPARATED DOSES/ DAY
     Route: 055
     Dates: start: 20190624
  3. IBUPROFEN SAFT 40 MG/ML [Concomitant]
     Indication: PNEUMONIA
     Dosage: DAILY DOSE: 7.5 ML MILLILITRE(S) EVERY DAYS 3 SEPARATED DOSES/ DAY
     Route: 048
     Dates: start: 20190624

REACTIONS (1)
  - Drug eruption [Recovered/Resolved]

NARRATIVE: CASE EVENT DATE: 20190629
